FAERS Safety Report 16178919 (Version 1)
Quarter: 2019Q2

REPORT INFORMATION
  Report Type: Spontaneous
  Country: US (occurrence: US)
  Receive Date: 20190307
  Receipt Date: 20190307
  Transmission Date: 20190711
  Serious: Yes (Other)
  Sender: FDA-Public Use
  Company Number: None

PATIENT
  Sex: Female

DRUGS (9)
  1. RAMIPRIL. [Concomitant]
     Active Substance: RAMIPRIL
  2. LEVEMIR [Concomitant]
     Active Substance: INSULIN DETEMIR
  3. NONOLOLOG [Concomitant]
  4. EZETIMIBE-ATORVASTATIN [Concomitant]
  5. INSULIN [Concomitant]
     Active Substance: INSULIN NOS
  6. PANTOPRAZOLE [Concomitant]
     Active Substance: PANTOPRAZOLE
  7. CARVEDILOL. [Concomitant]
     Active Substance: CARVEDILOL
  8. VANCOMYCIN HCL [Suspect]
     Active Substance: VANCOMYCIN HYDROCHLORIDE
     Indication: WOUND INFECTION
     Dosage: ?          OTHER FREQUENCY:Q12HRS;?
     Route: 042
     Dates: start: 20190128
  9. NORVASC [Concomitant]
     Active Substance: AMLODIPINE BESYLATE

REACTIONS (4)
  - Peripheral swelling [None]
  - Respiratory distress [None]
  - Pyrexia [None]
  - Rales [None]
